FAERS Safety Report 5191586-0 (Version None)
Quarter: 2006Q4

REPORT INFORMATION
  Report Type: 
  Country: None (occurrence: None)
  Receive Date: 20061219
  Receipt Date: 20061206
  Transmission Date: 20070319
  Serious: Yes (Hospitalization)
  Sender: FDA-Public Use
  Company Number: ST-2006-009373

PATIENT
  Age: 68 Year
  Sex: Female
  Weight: 78.7 kg

DRUGS (15)
  1. OLMESARTAN MEDOXOMIL [Suspect]
     Indication: DIABETES MELLITUS NON-INSULIN-DEPENDENT
     Dosage: 10 MG QD PO
     Route: 048
     Dates: start: 20040810, end: 20050125
  2. OLMESARTAN MEDOXOMIL [Suspect]
     Indication: DIABETIC NEPHROPATHY
     Dosage: 10 MG QD PO
     Route: 048
     Dates: start: 20040810, end: 20050125
  3. OLMESARTAN MEDOXOMIL [Suspect]
     Indication: DIABETES MELLITUS NON-INSULIN-DEPENDENT
     Dosage: 20 MG QD PO
     Route: 048
     Dates: start: 20050126, end: 20051122
  4. OLMESARTAN MEDOXOMIL [Suspect]
     Indication: DIABETIC NEPHROPATHY
     Dosage: 20 MG QD PO
     Route: 048
     Dates: start: 20050126, end: 20051122
  5. OLMESARTAN MEDOXOMIL [Suspect]
     Indication: DIABETES MELLITUS NON-INSULIN-DEPENDENT
     Dosage: 40 MG QD PO
     Route: 048
     Dates: start: 20051123, end: 20061110
  6. OLMESARTAN MEDOXOMIL [Suspect]
     Indication: DIABETIC NEPHROPATHY
     Dosage: 40 MG QD PO
     Route: 048
     Dates: start: 20051123, end: 20061110
  7. OLMESARTAN MEDOXOMIL [Suspect]
     Indication: DIABETES MELLITUS NON-INSULIN-DEPENDENT
     Dosage: 40 MG QD PO
     Route: 048
     Dates: start: 20061113
  8. OLMESARTAN MEDOXOMIL [Suspect]
     Indication: DIABETIC NEPHROPATHY
     Dosage: 40 MG QD PO
     Route: 048
     Dates: start: 20061113
  9. RENIVACE [Concomitant]
  10. NORVASC [Concomitant]
  11. SELECTOL [Concomitant]
  12. MEVALOTIN [Concomitant]
  13. UNIPHYL [Concomitant]
  14. AMARYL [Concomitant]
  15. ACTOS [Concomitant]

REACTIONS (5)
  - ANAEMIA [None]
  - BACK PAIN [None]
  - ECZEMA [None]
  - GASTRIC CANCER [None]
  - TINEA PEDIS [None]
